FAERS Safety Report 8423376-7 (Version None)
Quarter: 2012Q2

REPORT INFORMATION
  Report Type: 
  Country: None (occurrence: None)
  Receive Date: 20120608
  Receipt Date: 20120601
  Transmission Date: 20120825
  Serious: Yes (Other)
  Sender: FDA-Public Use
  Company Number: CHPA2012US011161

PATIENT
  Sex: Female

DRUGS (1)
  1. EXCEDRIN BACK \+ BODY CAPLETS [Suspect]
     Indication: ARTHRITIS
     Dosage: 1 DF, 4-5 DAYS A WEEK PRN
     Route: 048

REACTIONS (3)
  - ABDOMINAL DISTENSION [None]
  - VERTIGO [None]
  - UNDERDOSE [None]
